FAERS Safety Report 23267241 (Version 1)
Quarter: 2023Q4

REPORT INFORMATION
  Report Type: Spontaneous
  Country: BR (occurrence: None)
  Receive Date: 20231206
  Receipt Date: 20231206
  Transmission Date: 20240110
  Serious: Yes (Other)
  Sender: FDA-Public Use
  Company Number: BR-ROCHE-3450114

PATIENT
  Age: 16 Year
  Sex: Male

DRUGS (1)
  1. EMICIZUMAB [Suspect]
     Active Substance: EMICIZUMAB
     Indication: Haemophilia
     Dosage: THE MOST RECENT INFUSION WAS?PERFORMED ON 16-NOV-2023.
     Route: 065

REACTIONS (2)
  - Fall [Unknown]
  - Patella fracture [Not Recovered/Not Resolved]
